FAERS Safety Report 9738483 (Version 1)
Quarter: 2013Q4

REPORT INFORMATION
  Report Type: Spontaneous
  Country: US (occurrence: US)
  Receive Date: 20131208
  Receipt Date: 20131208
  Transmission Date: 20140711
  Serious: Yes (Life-Threatening, Hospitalization)
  Sender: FDA-Public Use
  Company Number: US-MYLANLABS-2013S1027005

PATIENT
  Age: 47 Year
  Sex: Female
  Weight: 110 kg

DRUGS (19)
  1. AMLODIPINE [Suspect]
     Indication: OVERDOSE
     Dosage: AT LEAST 70 X 5MG TABLETS (}350MG)
     Route: 048
  2. AMLODIPINE [Suspect]
     Indication: OVERDOSE
     Route: 048
  3. INTRALIPID /00272201/ [Suspect]
     Dosage: 20% SOYA OIL EMULSION 100ML BOLUS (0.91ML/KG)
     Route: 040
  4. INTRALIPID /00272201/ [Suspect]
     Dosage: 20% SOYA OIL EMULSION AT 100ML/H THEN INCREASED
     Route: 050
  5. INTRALIPID /00272201/ [Suspect]
     Dosage: 20% SOYA OIL EMULSION AT 500ML/H; TOTAL 2300ML (20.9ML/KG INFUSION TOTAL ADMINISTERED OVER 4.5H)
     Route: 050
  6. ZIPRASIDONE [Concomitant]
     Route: 048
  7. PREGABALIN [Concomitant]
     Route: 048
  8. CHARCOAL [Concomitant]
     Dosage: 75G
     Route: 048
  9. SODIUM CHLORIDE [Concomitant]
     Indication: HYPOTENSION
     Dosage: 3L OF 0.9% ADMINISTERED SEQUENTIALLY BETWEEN 14:20 AND 15:20
     Route: 065
  10. CALCIUM GLUCONATE [Concomitant]
     Indication: BLOOD PRESSURE MANAGEMENT
     Dosage: 2G
     Route: 040
  11. NOREPINEPHRINE [Concomitant]
     Dosage: 200MCG/MIN
     Route: 065
  12. VASOPRESSIN [Concomitant]
     Dosage: 0.06UNITS/H
     Route: 065
  13. PHENYLEPHRINE [Concomitant]
     Dosage: 300MCG/MIN
     Route: 065
  14. SODIUM CHLORIDE [Concomitant]
     Dosage: TOTAL OF 6L ADMINISTERED
     Route: 065
  15. CALCIUM CHLORIDE [Concomitant]
     Dosage: 40MG/KG/H
     Route: 065
  16. GLUCAGON [Concomitant]
     Dosage: MAXIMUM DOSE 10MG/H
     Route: 065
  17. INSULIN [Concomitant]
     Dosage: 5 UNITS/H TITRATED TO 15 UNITS/H
     Route: 050
  18. SODIUM BICARBONATE [Concomitant]
     Dosage: 2 AMPULES CONTAINING 50MEQ EACH FOLLOWED BY INFUSION
     Route: 065
  19. SODIUM BICARBONATE [Concomitant]
     Dosage: 15MEQ/H
     Route: 050

REACTIONS (5)
  - Haemodynamic instability [Recovering/Resolving]
  - Overdose [Recovering/Resolving]
  - Shock [Recovering/Resolving]
  - Hyperlipidaemia [Recovered/Resolved]
  - Hypoxia [Recovered/Resolved]
